FAERS Safety Report 10007485 (Version 1)
Quarter: 2014Q1

REPORT INFORMATION
  Report Type: Spontaneous
  Country: US (occurrence: None)
  Receive Date: 20140312
  Receipt Date: 20140312
  Transmission Date: 20141002
  Serious: Yes (Hospitalization)
  Sender: FDA-Public Use
  Company Number: None

PATIENT
  Age: 43 Year
  Sex: Female

DRUGS (1)
  1. NOVOLOG [Suspect]
     Route: 058
     Dates: start: 20140310, end: 20140310

REACTIONS (10)
  - Drug dispensing error [None]
  - Drug prescribing error [None]
  - Wrong drug administered [None]
  - Dizziness [None]
  - Asthenia [None]
  - Hypoaesthesia [None]
  - Heart rate increased [None]
  - Mental status changes [None]
  - Blood potassium decreased [None]
  - Blood glucose decreased [None]
